FAERS Safety Report 15549767 (Version 6)
Quarter: 2019Q1

REPORT INFORMATION
  Report Type: Spontaneous
  Country: DE (occurrence: DE)
  Receive Date: 20181025
  Receipt Date: 20190318
  Transmission Date: 20190417
  Serious: Yes (Hospitalization, Disabling, Other)
  Sender: FDA-Public Use
  Company Number: PHHY2018DE134074

PATIENT
  Sex: Female

DRUGS (6)
  1. HUMIRA [Suspect]
     Active Substance: ADALIMUMAB
     Indication: RHEUMATOID ARTHRITIS
     Dosage: 40 MG, (EVERY 14 DAYS)
     Route: 058
     Dates: start: 20181006
  2. PREDNISOLONE. [Suspect]
     Active Substance: PREDNISOLONE
     Indication: DIARRHOEA
  3. PREDNISOLONE. [Suspect]
     Active Substance: PREDNISOLONE
     Indication: INTESTINAL HAEMORRHAGE
     Dosage: GRADUALLY REDUCED FROM 60 MG TO 5 MG
     Route: 065
  4. HUMIRA [Suspect]
     Active Substance: ADALIMUMAB
     Indication: CROHN^S DISEASE
     Dosage: 40 MG, (EVERY 14 DAYS)
     Route: 058
     Dates: start: 20170904, end: 20180908
  5. PREDNISOLONE. [Suspect]
     Active Substance: PREDNISOLONE
     Indication: DIARRHOEA HAEMORRHAGIC
  6. PREDNISOLONE. [Suspect]
     Active Substance: PREDNISOLONE
     Indication: CONDITION AGGRAVATED

REACTIONS (15)
  - Diarrhoea [Recovering/Resolving]
  - Oral fungal infection [Recovering/Resolving]
  - Rash macular [Recovered/Resolved]
  - Condition aggravated [Recovering/Resolving]
  - Oral herpes [Recovering/Resolving]
  - Diarrhoea haemorrhagic [Recovered/Resolved]
  - Alopecia [Not Recovered/Not Resolved]
  - Skin papilloma [Not Recovered/Not Resolved]
  - Onychoclasis [Not Recovered/Not Resolved]
  - Oral pain [Recovering/Resolving]
  - Drug ineffective [Unknown]
  - Intestinal haemorrhage [Recovered/Resolved]
  - Coeliac disease [Not Recovered/Not Resolved]
  - Visual acuity reduced [Recovered/Resolved]
  - Device issue [Unknown]

NARRATIVE: CASE EVENT DATE: 201710
